FAERS Safety Report 6266286-6 (Version None)
Quarter: 2009Q3

REPORT INFORMATION
  Report Type: 
  Country: None (occurrence: None)
  Receive Date: 20090713
  Receipt Date: 20090708
  Transmission Date: 20100115
  Serious: Yes (Other)
  Sender: FDA-Public Use
  Company Number: US-MYLANLABS-2009S1011704

PATIENT
  Age: 74 Year
  Sex: Female
  Weight: 77.11 kg

DRUGS (14)
  1. ULTRAM [Suspect]
     Indication: PROCTALGIA
     Route: 048
  2. TRAMADOL HCL [Suspect]
     Indication: PROCTALGIA
     Route: 048
  3. TRAMADOL HCL [Suspect]
     Dosage: 75MG DAILY
     Dates: start: 20090501, end: 20090601
  4. TRAMADOL HCL [Suspect]
     Dosage: 75MG DAILY
     Dates: start: 20090501, end: 20090601
  5. TRAMADOL HCL [Suspect]
     Dates: start: 20090601
  6. TRAMADOL HCL [Suspect]
     Dates: start: 20090601
  7. DIOVAN [Concomitant]
     Route: 048
  8. NORVASC [Concomitant]
     Route: 048
  9. LEVOTHYROXINE SODIUM [Concomitant]
     Route: 048
  10. ASACOL [Concomitant]
     Route: 048
  11. SINEMET [Concomitant]
     Route: 048
  12. HYDROCHLOROTHIAZIDE [Concomitant]
     Route: 048
  13. ACIPHEX [Concomitant]
     Route: 048
  14. VITAMIN D [Concomitant]
     Route: 048

REACTIONS (6)
  - CHILLS [None]
  - DEPENDENCE [None]
  - DRUG INEFFECTIVE [None]
  - DRUG WITHDRAWAL SYNDROME [None]
  - RESTLESS LEGS SYNDROME [None]
  - TINNITUS [None]
